FAERS Safety Report 13189162 (Version 1)
Quarter: 2017Q1

REPORT INFORMATION
  Report Type: Spontaneous
  Country: RO (occurrence: RO)
  Receive Date: 20170206
  Receipt Date: 20170206
  Transmission Date: 20170428
  Serious: Yes (Hospitalization)
  Sender: FDA-Public Use
  Company Number: PHHY2017RO017460

PATIENT
  Age: 66 Year
  Sex: Male

DRUGS (2)
  1. POTASSIUM [Concomitant]
     Active Substance: POTASSIUM
     Indication: PRODUCT USED FOR UNKNOWN INDICATION
     Route: 065
  2. ENTRESTO [Suspect]
     Active Substance: SACUBITRIL\VALSARTAN
     Indication: CARDIAC FAILURE CONGESTIVE
     Dosage: 50 MG, UNK
     Route: 048

REACTIONS (4)
  - Hyperkalaemia [Unknown]
  - Acute myocardial infarction [Unknown]
  - Renal impairment [Unknown]
  - Hypotension [Unknown]

NARRATIVE: CASE EVENT DATE: 20170115
